FAERS Safety Report 4321829-4 (Version None)
Quarter: 2004Q1

REPORT INFORMATION
  Report Type: 
  Country: None (occurrence: None)
  Receive Date: 20040322
  Receipt Date: 20040322
  Transmission Date: 20041129
  Serious: Yes (Hospitalization)
  Sender: FDA-Public Use
  Company Number: None

PATIENT
  Age: 38 Year
  Sex: Male
  Weight: 92.9874 kg

DRUGS (4)
  1. THALIDOMIDE 400 MG DAILY [Suspect]
     Indication: GLIOBLASTOMA MULTIFORME
     Dosage: 400 MG DAILY PO
     Route: 048
  2. DECADRON [Concomitant]
  3. COUMADIN [Concomitant]
  4. DEPAKOTE [Concomitant]

REACTIONS (1)
  - PULMONARY EMBOLISM [None]
